FAERS Safety Report 17147568 (Version 3)
Quarter: 2021Q1

REPORT INFORMATION
  Report Type: Spontaneous
  Country: US (occurrence: US)
  Receive Date: 20191212
  Receipt Date: 20210228
  Transmission Date: 20210419
  Serious: Yes (Disabling)
  Sender: FDA-Public Use
  Company Number: US-TEVA-2019-US-1150604

PATIENT
  Age: 59 Year
  Sex: Female
  Weight: 78.09 kg

DRUGS (24)
  1. DOCETAXEL INJECTION [Suspect]
     Active Substance: DOCETAXEL
     Indication: BREAST CANCER
     Dosage: EVERY 3 WEEKS FOR 6 CYCLES
     Route: 065
     Dates: start: 20170720, end: 20171102
  2. LIDOCAINE. [Concomitant]
     Active Substance: LIDOCAINE
  3. FAMOTIDINE. [Concomitant]
     Active Substance: FAMOTIDINE
  4. ESTRACE [Concomitant]
     Active Substance: ESTRADIOL
     Route: 067
     Dates: start: 20150915, end: 2015
  5. PERTUZUMAB. [Concomitant]
     Active Substance: PERTUZUMAB
     Dates: start: 20170720, end: 2018
  6. FENTANYL. [Concomitant]
     Active Substance: FENTANYL
  7. ESTRACE [Concomitant]
     Active Substance: ESTRADIOL
     Dosage: ONGOING
     Route: 067
  8. DIAZEPAM. [Concomitant]
     Active Substance: DIAZEPAM
     Dosage: ONGOING
  9. SIMVASTATIN. [Concomitant]
     Active Substance: SIMVASTATIN
     Dates: start: 201406, end: 201707
  10. DIAZEPAM. [Concomitant]
     Active Substance: DIAZEPAM
     Dates: start: 201612, end: 201707
  11. VIVELLE?DOT [Concomitant]
     Active Substance: ESTRADIOL
     Dosage: ONGOING
     Route: 065
  12. HEPARIN [Concomitant]
     Active Substance: HEPARIN SODIUM
  13. FLONASE [Concomitant]
     Active Substance: FLUTICASONE PROPIONATE
     Dosage: ONGOING
     Route: 065
  14. HERCEPTIN [Concomitant]
     Active Substance: TRASTUZUMAB
     Dates: start: 20150720, end: 2018
  15. MIDAZOLAM. [Concomitant]
     Active Substance: MIDAZOLAM
  16. FLONASE [Concomitant]
     Active Substance: FLUTICASONE PROPIONATE
     Dates: start: 201410, end: 201612
  17. HYDROCHLOROTHIAZIDE. [Concomitant]
     Active Substance: HYDROCHLOROTHIAZIDE
     Dates: start: 201406, end: 201707
  18. NEULASTA [Concomitant]
     Active Substance: PEGFILGRASTIM
  19. PALONOSETRON. [Concomitant]
     Active Substance: PALONOSETRON HYDROCHLORIDE
  20. PARAPLATIN [Suspect]
     Active Substance: CARBOPLATIN
     Indication: BREAST CANCER
     Dosage: TOGETHER EVERY 3 WEEKS FOR 6 CYCLES
     Route: 065
     Dates: start: 20170720, end: 20171102
  21. HYDROCHLOROTHIAZIDE. [Concomitant]
     Active Substance: HYDROCHLOROTHIAZIDE
     Dates: start: 2017, end: 2018
  22. SIMVASTATIN. [Concomitant]
     Active Substance: SIMVASTATIN
     Dates: start: 2017, end: 2018
  23. VIVELLE?DOT [Concomitant]
     Active Substance: ESTRADIOL
     Dates: start: 2016, end: 2016
  24. LORAZEPAM. [Concomitant]
     Active Substance: LORAZEPAM

REACTIONS (1)
  - Alopecia universalis [Not Recovered/Not Resolved]

NARRATIVE: CASE EVENT DATE: 201712
